FAERS Safety Report 6919181-0 (Version None)
Quarter: 2010Q3

REPORT INFORMATION
  Report Type: 
  Country: None (occurrence: None)
  Receive Date: 20100811
  Receipt Date: 20100802
  Transmission Date: 20110219
  Serious: Yes (Other)
  Sender: FDA-Public Use
  Company Number: VN-PFIZER INC-2010097006

PATIENT
  Age: 6 Day
  Sex: Female
  Weight: 3 kg

DRUGS (1)
  1. UNASYN [Suspect]
     Indication: AMNIOCENTESIS ABNORMAL
     Dosage: 1.5 G, 1X/DAY
     Route: 042
     Dates: start: 20100726, end: 20100726

REACTIONS (3)
  - PULSE ABNORMAL [None]
  - SKIN STRIAE [None]
  - TACHYCARDIA [None]
